FAERS Safety Report 20055244 (Version 1)
Quarter: 2021Q4

REPORT INFORMATION
  Report Type: Other
  Country: None (occurrence: US)
  Receive Date: 20211110
  Receipt Date: 20211110
  Transmission Date: 20220303
  Serious: Yes (Death)
  Sender: FDA-Public Use
  Company Number: US-B.Braun Medical Inc.-2121727

PATIENT
  Age: 68 Year
  Sex: Male

DRUGS (4)
  1. BUPIVACAINE HYDROCHLORIDE WITH DEXTROSE [Suspect]
     Active Substance: BUPIVACAINE HYDROCHLORIDE
  2. BACLOFEN [Interacting]
     Active Substance: BACLOFEN
  3. CLONIDINE [Interacting]
     Active Substance: CLONIDINE
  4. HYDROMORPHONE HCL [Interacting]
     Active Substance: HYDROMORPHONE HYDROCHLORIDE

REACTIONS (4)
  - Toxicity to various agents [Fatal]
  - Coma [Fatal]
  - Leukocytosis [Fatal]
  - Acute kidney injury [Fatal]
